FAERS Safety Report 8488024-9 (Version None)
Quarter: 2012Q3

REPORT INFORMATION
  Report Type: 
  Country: None (occurrence: None)
  Receive Date: 20120705
  Receipt Date: 20120702
  Transmission Date: 20120928
  Serious: Yes (Life-Threatening, Hospitalization)
  Sender: FDA-Public Use
  Company Number: PHEH2012US013098

PATIENT
  Sex: Male
  Weight: 58.957 kg

DRUGS (1)
  1. EXJADE [Suspect]
     Indication: IRON OVERLOAD
     Dosage: 500 MG, QD
     Route: 048
     Dates: start: 20120618

REACTIONS (7)
  - ABNORMAL SENSATION IN EYE [None]
  - DECREASED APPETITE [None]
  - ABDOMINAL DISTENSION [None]
  - GASTROINTESTINAL INFLAMMATION [None]
  - FLATULENCE [None]
  - GASTROINTESTINAL HAEMORRHAGE [None]
  - ASTHENIA [None]
